FAERS Safety Report 11751643 (Version 1)
Quarter: 2015Q4

REPORT INFORMATION
  Report Type: Spontaneous
  Country: US (occurrence: US)
  Receive Date: 20151118
  Receipt Date: 20151118
  Transmission Date: 20160304
  Serious: Yes (Other)
  Sender: FDA-Public Use
  Company Number: US-IMPAX LABORATORIES, INC-2015-IPXL-01153

PATIENT
  Age: 44 Year
  Sex: Female

DRUGS (1)
  1. ADRENACLICK [Suspect]
     Active Substance: EPINEPHRINE
     Indication: HAEMORRHAGE
     Dosage: UNK
     Route: 065

REACTIONS (4)
  - Bradycardia [Recovering/Resolving]
  - Hypotension [Recovering/Resolving]
  - Arteriospasm coronary [Recovered/Resolved]
  - Electrocardiogram ST segment elevation [Recovered/Resolved]
